FAERS Safety Report 18791202 (Version 1)
Quarter: 2021Q1

REPORT INFORMATION
  Report Type: Spontaneous
  Country: US (occurrence: US)
  Receive Date: 20210126
  Receipt Date: 20210126
  Transmission Date: 20210419
  Serious: Yes (Hospitalization, Other)
  Sender: FDA-Public Use
  Company Number: US-CHIESI USA, INC.-US-2021CHI000016

PATIENT

DRUGS (8)
  1. ZYFLO [Suspect]
     Active Substance: ZILEUTON
     Indication: SWELLING FACE
  2. ZYFLO [Suspect]
     Active Substance: ZILEUTON
     Indication: PHARYNGEAL SWELLING
  3. ZYFLO CR [Suspect]
     Active Substance: ZILEUTON
     Indication: PHARYNGEAL SWELLING
  4. ZYFLO [Suspect]
     Active Substance: ZILEUTON
     Indication: ASTHMA
     Dosage: UNK
     Route: 048
  5. ZYFLO CR [Suspect]
     Active Substance: ZILEUTON
     Indication: ASTHMA
     Dosage: UNK
     Route: 048
     Dates: start: 20191031, end: 20200115
  6. ZYFLO CR [Suspect]
     Active Substance: ZILEUTON
     Indication: PERIPHERAL SWELLING
  7. ZYFLO [Suspect]
     Active Substance: ZILEUTON
     Indication: PERIPHERAL SWELLING
  8. ZYFLO CR [Suspect]
     Active Substance: ZILEUTON
     Indication: SWELLING FACE

REACTIONS (7)
  - Lymphatic fistula [Unknown]
  - Dyspnoea [Unknown]
  - Jaw operation [Unknown]
  - Product use in unapproved indication [Unknown]
  - Hypersensitivity [Unknown]
  - Road traffic accident [Unknown]
  - Hallucination [Unknown]

NARRATIVE: CASE EVENT DATE: 2009
